FAERS Safety Report 6126261-9 (Version None)
Quarter: 2009Q1

REPORT INFORMATION
  Report Type: 
  Country: None (occurrence: None)
  Receive Date: 20090320
  Receipt Date: 20090217
  Transmission Date: 20090719
  Serious: No
  Sender: FDA-Public Use
  Company Number: A0768901A

PATIENT
  Age: 72 Year
  Sex: Female

DRUGS (6)
  1. PROMACTA [Suspect]
     Dosage: 50MG TWICE PER DAY
     Route: 048
     Dates: start: 20090207
  2. TOPROL-XL [Concomitant]
  3. ZOCOR [Concomitant]
  4. VITAMIN B-12 [Concomitant]
  5. ASCORBIC ACID [Concomitant]
  6. WOMENS MULTIVITAMIN [Concomitant]

REACTIONS (2)
  - DRUG INEFFECTIVE [None]
  - RASH MACULAR [None]
